FAERS Safety Report 5135988-7 (Version None)
Quarter: 2006Q4

REPORT INFORMATION
  Report Type: 
  Country: None (occurrence: None)
  Receive Date: 20061020
  Receipt Date: 20061009
  Transmission Date: 20070319
  Serious: Yes (Hospitalization, Disabling, Other)
  Sender: FDA-Public Use
  Company Number: 2006124546

PATIENT
  Age: 50 Year
  Sex: Male
  Weight: 80 kg

DRUGS (6)
  1. LIPITOR [Suspect]
     Indication: BLOOD CHOLESTEROL INCREASED
     Dosage: 20 MG (20 MG, 1 IN 1 D), ORAL
     Route: 048
     Dates: start: 20020610, end: 20050311
  2. AVANDIA [Concomitant]
  3. CLUCOPHAGE (METFORMIN HYDROCHLORIDE) [Concomitant]
  4. CITALOPRAM HYDROBROMIDE [Concomitant]
  5. GLIBENCLAMIDE RATIOPHARM (GLIBENCLAMIDE) [Concomitant]
  6. GLYBURIDE [Concomitant]

REACTIONS (12)
  - ABASIA [None]
  - BEDRIDDEN [None]
  - BLOOD CREATINE PHOSPHOKINASE INCREASED [None]
  - BLOOD CREATINE PHOSPHOKINASE MB INCREASED [None]
  - CARDIOMYOPATHY [None]
  - DIABETES MELLITUS INADEQUATE CONTROL [None]
  - MUSCLE ATROPHY [None]
  - MUSCLE NECROSIS [None]
  - MYOPATHY [None]
  - NEURON-SPECIFIC ENOLASE INCREASED [None]
  - RED BLOOD CELL SEDIMENTATION RATE INCREASED [None]
  - TROPONIN T INCREASED [None]
